FAERS Safety Report 9806292 (Version 3)
Quarter: 2014Q1

REPORT INFORMATION
  Report Type: Spontaneous
  Country: GB (occurrence: GB)
  Receive Date: 20140109
  Receipt Date: 20140210
  Transmission Date: 20141002
  Serious: Yes (Death, Other)
  Sender: FDA-Public Use
  Company Number: GB-TEVA-454369ISR

PATIENT
  Age: 59 Year
  Sex: Male

DRUGS (10)
  1. CITALOPRAM [Suspect]
     Indication: DEPRESSION
     Dosage: 30 MILLIGRAM DAILY; 30 MG, DAILY
     Route: 048
  2. CLOZARIL [Suspect]
     Indication: SCHIZOPHRENIA
     Dosage: UNK
     Route: 048
     Dates: start: 20100908
  3. CLOZARIL [Suspect]
     Dosage: 600 MILLIGRAM DAILY; 600 MG, DAILY
     Route: 048
  4. AMISULPRIDE [Suspect]
     Indication: SCHIZOPHRENIA
     Dosage: 200 MILLIGRAM DAILY; 200 MG, DAILY
     Route: 048
  5. LITHIUM [Suspect]
     Dates: start: 2010
  6. SIMVASTATIN [Concomitant]
     Indication: BLOOD CHOLESTEROL INCREASED
     Dosage: 20 MG, UNK
     Route: 048
  7. AMLODIPINE [Concomitant]
     Indication: BLOOD PRESSURE INCREASED
  8. AMOXICILLIN [Concomitant]
     Dosage: 500 MG, UNK
  9. DOCUSATE [Concomitant]
     Indication: ABDOMINAL DISCOMFORT
  10. SENNA [Concomitant]
     Indication: ABDOMINAL DISCOMFORT
     Dosage: 7.5 UNK
     Route: 048

REACTIONS (3)
  - Death [Fatal]
  - Diabetes insipidus [Unknown]
  - Hypernatraemia [Unknown]
